FAERS Safety Report 18606969 (Version 1)
Quarter: 2020Q4

REPORT INFORMATION
  Report Type: Spontaneous
  Country: KH (occurrence: KH)
  Receive Date: 20201211
  Receipt Date: 20201211
  Transmission Date: 20210114
  Serious: Yes (Death, Other)
  Sender: FDA-Public Use
  Company Number: PHHY2019KH164684

PATIENT
  Sex: Male

DRUGS (2)
  1. GLIVEC [Suspect]
     Active Substance: IMATINIB MESYLATE
     Indication: GASTROINTESTINAL STROMAL TUMOUR
     Dosage: 600 MG, QD
     Route: 065
     Dates: start: 20160704
  2. GLIVEC [Suspect]
     Active Substance: IMATINIB MESYLATE
     Dosage: 800 MG, UNK (8X100MG)
     Route: 065
     Dates: start: 20181015

REACTIONS (7)
  - Malignant neoplasm progression [Fatal]
  - Metastases to pelvis [Fatal]
  - Haemorrhage [Fatal]
  - Tumour pain [Unknown]
  - Ureteric obstruction [Fatal]
  - Gastrointestinal stromal tumour [Fatal]
  - Rectal haemorrhage [Unknown]
